FAERS Safety Report 6247214-6 (Version None)
Quarter: 2009Q2

REPORT INFORMATION
  Report Type: 
  Country: None (occurrence: None)
  Receive Date: 20090626
  Receipt Date: 20090615
  Transmission Date: 20091009
  Serious: Yes (Hospitalization)
  Sender: FDA-Public Use
  Company Number: AU-PFIZER INC-2009211267

PATIENT
  Age: 48 Year

DRUGS (5)
  1. IDARUBICIN HCL [Suspect]
     Indication: ACUTE MYELOID LEUKAEMIA
     Dosage: 16.3 MG, 1X/DAY FOR 3 DAYS
     Route: 042
     Dates: start: 20090420, end: 20090422
  2. CYTARABINE [Suspect]
     Indication: ACUTE MYELOID LEUKAEMIA
     Dosage: 5430 MG, 2X/DAY, ON DAYS 1,3,5,7
     Route: 042
     Dates: start: 20090420, end: 20090427
  3. ETOPOSIDE [Suspect]
     Indication: ACUTE MYELOID LEUKAEMIA
     Dosage: 135.8 MG, 1X/DAY, FOR 7 DAYS
     Route: 042
     Dates: start: 20090420, end: 20090426
  4. PEGFILGRASTIM [Suspect]
     Indication: ACUTE MYELOID LEUKAEMIA
     Dosage: 6 MG, SINGLE
     Route: 058
     Dates: start: 20090428, end: 20090428
  5. BLINDED THERAPY [Suspect]
     Indication: ACUTE MYELOID LEUKAEMIA
     Dosage: 4.14 MG, DAYS 1, 2, 3 AND DAYS 8, 9, 10
     Route: 042
     Dates: start: 20090417, end: 20090430

REACTIONS (1)
  - PNEUMONIA FUNGAL [None]
